FAERS Safety Report 12859934 (Version 1)
Quarter: 2016Q4

REPORT INFORMATION
  Report Type: Spontaneous
  Country: BR (occurrence: BR)
  Receive Date: 20161018
  Receipt Date: 20161018
  Transmission Date: 20170207
  Serious: Yes (Other)
  Sender: FDA-Public Use
  Company Number: BR-ELI_LILLY_AND_COMPANY-BR201610002171

PATIENT
  Sex: Female
  Weight: 56 kg

DRUGS (3)
  1. LANTUS [Concomitant]
     Active Substance: INSULIN GLARGINE
     Dosage: 50 IU, UNKNOWN
     Route: 065
  2. HUMALOG [Suspect]
     Active Substance: INSULIN LISPRO
     Dosage: UNK, FOUR TIMES A DAY
     Route: 065
  3. HUMALOG [Suspect]
     Active Substance: INSULIN LISPRO
     Indication: TYPE 2 DIABETES MELLITUS
     Dosage: UNK, FOUR TIMES A DAY
     Route: 065

REACTIONS (3)
  - Dementia Alzheimer^s type [Unknown]
  - Cardiac disorder [Unknown]
  - Tremor [Unknown]

NARRATIVE: CASE EVENT DATE: 2010
